FAERS Safety Report 9295105 (Version 3)
Quarter: 2013Q2

REPORT INFORMATION
  Report Type: Report from Study
  Country: CN (occurrence: CN)
  Receive Date: 20130517
  Receipt Date: 20130625
  Transmission Date: 20140414
  Serious: Yes (Hospitalization)
  Sender: FDA-Public Use
  Company Number: CN-ASTELLAS-2013JP005861

PATIENT
  Age: 21 Year
  Sex: Female
  Weight: 52 kg

DRUGS (13)
  1. TACROLIMUS [Suspect]
     Indication: NEPHROTIC SYNDROME
     Dosage: 1 MG, BID
     Route: 048
     Dates: start: 20130501
  2. TACROLIMUS [Suspect]
     Dosage: 1 MG, UNKNOWN/D
     Route: 048
     Dates: start: 20120903, end: 20120905
  3. TACROLIMUS [Suspect]
     Dosage: 2 MG, UNKNOWN/D
     Route: 048
     Dates: start: 20120906, end: 20120910
  4. TACROLIMUS [Suspect]
     Dosage: 4 MG, UNKNOWN/D
     Route: 048
     Dates: start: 20120911, end: 20121218
  5. TACROLIMUS [Suspect]
     Dosage: 3 MG, UNKNOWN/D
     Route: 048
     Dates: start: 20121219, end: 20130115
  6. TACROLIMUS [Suspect]
     Dosage: 2 MG, UNKNOWN/D
     Route: 048
     Dates: start: 20130116, end: 20130205
  7. TACROLIMUS [Suspect]
     Dosage: 1.5 MG, UNKNOWN/D
     Route: 048
     Dates: start: 20130206, end: 20130305
  8. TACROLIMUS [Suspect]
     Dosage: 1 MG, UNKNOWN/D
     Route: 048
     Dates: start: 20130306, end: 20130409
  9. TACROLIMUS [Suspect]
     Dosage: 0.5 MG, UNKNOWN/D
     Route: 048
     Dates: start: 20130410, end: 20130430
  10. DEXTRAN 40 [Concomitant]
     Dosage: 50 ML, UNKNOWN/D
     Route: 065
     Dates: start: 20130509, end: 20130514
  11. HEPARIN [Concomitant]
     Dosage: 4100 U, UNKNOWN/D
     Route: 065
     Dates: start: 20130509, end: 20130518
  12. OMEPRAZOLE [Concomitant]
     Dosage: 40 MG, UNKNOWN/D
     Route: 048
     Dates: start: 20130509, end: 20130515
  13. HYDROTALCITE [Concomitant]
     Dosage: 1500 MG, UNKNOWN/D
     Route: 065
     Dates: start: 20130509

REACTIONS (1)
  - Nephrotic syndrome [Recovered/Resolved]
